FAERS Safety Report 15818758 (Version 15)
Quarter: 2021Q1

REPORT INFORMATION
  Report Type: Spontaneous
  Country: US (occurrence: US)
  Receive Date: 20190113
  Receipt Date: 20210113
  Transmission Date: 20210419
  Serious: Yes (Other)
  Sender: FDA-Public Use
  Company Number: US-PFIZER INC-2019016077

PATIENT
  Age: 54 Year
  Sex: Female
  Weight: 68 kg

DRUGS (5)
  1. XELJANZ XR [Suspect]
     Active Substance: TOFACITINIB CITRATE
     Indication: SJOGREN^S SYNDROME
     Dosage: 11 MG, DAILY
     Route: 048
     Dates: start: 2018, end: 2018
  2. XELJANZ XR [Suspect]
     Active Substance: TOFACITINIB CITRATE
     Indication: RHEUMATOID ARTHRITIS
     Dosage: 11 MG, 1X/DAY
     Dates: start: 2015, end: 20200717
  3. XELJANZ XR [Suspect]
     Active Substance: TOFACITINIB CITRATE
     Indication: SYSTEMIC LUPUS ERYTHEMATOSUS
     Dosage: 10 MG, 1X/DAY
     Dates: start: 201806
  4. REVLIMID [Concomitant]
     Active Substance: LENALIDOMIDE
     Indication: SJOGREN^S SYNDROME
     Dosage: UNK
  5. XELJANZ XR [Suspect]
     Active Substance: TOFACITINIB CITRATE
     Dosage: 11 MG, 1X/DAY
     Dates: start: 202008

REACTIONS (9)
  - Drug ineffective [Unknown]
  - Hand fracture [Recovered/Resolved]
  - Laryngitis [Recovered/Resolved]
  - Illness [Unknown]
  - Muscle spasms [Recovered/Resolved]
  - Aphonia [Unknown]
  - Pain [Unknown]
  - Headache [Unknown]
  - Movement disorder [Recovered/Resolved]

NARRATIVE: CASE EVENT DATE: 2019
